FAERS Safety Report 14669620 (Version 2)
Quarter: 2019Q1

REPORT INFORMATION
  Report Type: Spontaneous
  Country: ES (occurrence: ES)
  Receive Date: 20180322
  Receipt Date: 20190122
  Transmission Date: 20190417
  Serious: Yes (Other)
  Sender: FDA-Public Use
  Company Number: ES-GLAXOSMITHKLINE-ES2018044455

PATIENT
  Age: 41 Year
  Sex: Female
  Weight: 52 kg

DRUGS (3)
  1. LAMICTAL [Suspect]
     Active Substance: LAMOTRIGINE
     Indication: MIGRAINE WITH AURA
     Dosage: HALF A TABLET ONE WEEK, 1 TABLET 2 WEEKS AND 2 PILLS BELOW
     Route: 048
     Dates: start: 20180123
  2. IBUPROFEN. [Concomitant]
     Active Substance: IBUPROFEN
     Indication: MIGRAINE WITH AURA
     Dosage: UNK
     Route: 065
  3. OMEPRAZOL [Concomitant]
     Active Substance: OMEPRAZOLE
     Indication: PROPHYLAXIS AGAINST GASTROINTESTINAL ULCER
     Dosage: ON DEMAND IF FREQUENCY OF IBUPROFEN IS HIGH
     Route: 065

REACTIONS (8)
  - Muscular weakness [Recovering/Resolving]
  - Dizziness [Recovering/Resolving]
  - Visual impairment [Recovering/Resolving]
  - Migraine with aura [Unknown]
  - Derealisation [Recovering/Resolving]
  - Lymphadenopathy [Recovering/Resolving]
  - Condition aggravated [Unknown]
  - Restlessness [Recovering/Resolving]

NARRATIVE: CASE EVENT DATE: 20180220
